FAERS Safety Report 24252071 (Version 1)
Quarter: 2024Q3

REPORT INFORMATION
  Report Type: Spontaneous
  Country: US (occurrence: US)
  Receive Date: 20240827
  Receipt Date: 20240827
  Transmission Date: 20241016
  Serious: Yes (Other)
  Sender: TRIS PHARM
  Company Number: US-TRIS PHARMA, INC.-24US011595

PATIENT

DRUGS (1)
  1. ACETAMINOPHEN\HYDROCODONE BITARTRATE [Suspect]
     Active Substance: ACETAMINOPHEN\HYDROCODONE BITARTRATE
     Indication: Product used for unknown indication
     Dosage: UNK

REACTIONS (4)
  - Drug abuse [Unknown]
  - Drug diversion [Unknown]
  - Suspected counterfeit product [Unknown]
  - Expired product administered [Unknown]
